FAERS Safety Report 6116640-8 (Version None)
Quarter: 2009Q1

REPORT INFORMATION
  Report Type: 
  Country: None (occurrence: None)
  Receive Date: 20090314
  Receipt Date: 20081218
  Transmission Date: 20090719
  Serious: No
  Sender: FDA-Public Use
  Company Number: US-ABBOTT-08P-163-0493959-00

PATIENT
  Sex: Female
  Weight: 57.658 kg

DRUGS (5)
  1. HUMIRA [Suspect]
     Indication: PSORIATIC ARTHROPATHY
     Route: 058
     Dates: start: 20080604
  2. ALEVE [Concomitant]
     Indication: PROPHYLAXIS
     Dates: start: 20070101
  3. ALEVE [Concomitant]
     Indication: JOINT SWELLING
  4. FISH OIL [Concomitant]
     Indication: SUPPLEMENTATION THERAPY
  5. MULTI-VITAMIN [Concomitant]
     Indication: VITAMIN SUPPLEMENTATION

REACTIONS (2)
  - INJECTION SITE NODULE [None]
  - PAIN [None]
